FAERS Safety Report 9236040 (Version 2)
Quarter: 2013Q2

REPORT INFORMATION
  Report Type: Spontaneous
  Country: SE (occurrence: None)
  Receive Date: 20130408
  Receipt Date: 20130419
  Transmission Date: 20140414
  Serious: Yes (Life-Threatening, Hospitalization)
  Sender: FDA-Public Use
  Company Number: 2013035278

PATIENT
  Age: 70 Year
  Sex: Female

DRUGS (2)
  1. PRIVIGEN (IMMUNE GLOBULIN INTRAVENOUS (HUMAN) 10% LIQUID) [Suspect]
     Indication: DEMYELINATING POLYNEUROPATHY
     Dosage: 30 GMD, 30 GMD
     Dates: start: 20130117, end: 20130122
  2. PRIVIGEN (IMMUNE GLOBULIN INTRAVENOUS (HUMAN) 10% LIQUID) [Suspect]
     Indication: GUILLAIN-BARRE SYNDROME
     Dosage: 30 GMD, 30 GMD
     Dates: start: 20130117, end: 20130122

REACTIONS (5)
  - Haemolytic anaemia [None]
  - Haemolysis [None]
  - Off label use [None]
  - General physical health deterioration [None]
  - Liver disorder [None]
